FAERS Safety Report 4980304-4 (Version None)
Quarter: 2006Q2

REPORT INFORMATION
  Report Type: 
  Country: None (occurrence: None)
  Receive Date: 20060420
  Receipt Date: 20060420
  Transmission Date: 20061013
  Serious: Yes (Hospitalization)
  Sender: FDA-Public Use
  Company Number: None

PATIENT
  Age: 73 Year
  Sex: Female
  Weight: 58.5 kg

DRUGS (11)
  1. LISINOPRIL [Suspect]
  2. ARIPIPRAZOLE [Concomitant]
  3. LORAZEPAM [Concomitant]
  4. IBUPROFEN [Concomitant]
  5. OLANZAPINE [Concomitant]
  6. HALOPERIDOL [Concomitant]
  7. LOSARTAN POTASSIUM [Concomitant]
  8. CARVEDILOL [Concomitant]
  9. FUROSEMIDE [Concomitant]
  10. CLONIDINE [Concomitant]
  11. SYNTHROID [Concomitant]

REACTIONS (1)
  - ANGIONEUROTIC OEDEMA [None]
